FAERS Safety Report 7874151-3 (Version None)
Quarter: 2011Q4

REPORT INFORMATION
  Report Type: 
  Country: None (occurrence: None)
  Receive Date: 20111030
  Receipt Date: 20110516
  Transmission Date: 20120403
  Serious: No
  Sender: FDA-Public Use
  Company Number: US-AMGEN-USASP2011020457

PATIENT
  Age: 50 Year
  Sex: Female

DRUGS (2)
  1. ENBREL [Suspect]
     Indication: ARTHRITIS REACTIVE
  2. ENBREL [Suspect]
     Indication: ANKYLOSING SPONDYLITIS
     Dosage: 50 MG, QWK
     Dates: start: 20050530

REACTIONS (8)
  - ARTHRITIS [None]
  - SKIN ULCER [None]
  - INJECTION SITE PRURITUS [None]
  - SKIN LESION [None]
  - RED BLOOD CELL SEDIMENTATION RATE INCREASED [None]
  - INJECTION SITE ERYTHEMA [None]
  - VENOUS ULCER PAIN [None]
  - ANKYLOSING SPONDYLITIS [None]
